FAERS Safety Report 5106768-3 (Version None)
Quarter: 2006Q3

REPORT INFORMATION
  Report Type: 
  Country: None (occurrence: None)
  Receive Date: 20060918
  Receipt Date: 20060601
  Transmission Date: 20061208
  Serious: Yes (Other)
  Sender: FDA-Public Use
  Company Number: PHRM2006FR01722

PATIENT
  Age: 77 Year
  Sex: Male
  Weight: 68 kg

DRUGS (4)
  1. TRIVASTAL [Concomitant]
     Dosage: 150 MG DAILY
     Route: 048
     Dates: start: 20000420
  2. DEPRENYL [Concomitant]
     Dosage: 5 MG, QD
     Route: 048
     Dates: start: 20030417
  3. STALEVO 100 [Suspect]
     Indication: PARKINSON'S DISEASE
     Dosage: 800/600/150 MG DAILY
     Route: 048
     Dates: start: 20041213, end: 20041222
  4. MODOPAR [Concomitant]
     Dosage: 25/100 TO 50/200 MG DAILY
     Route: 048
     Dates: start: 20040401

REACTIONS (2)
  - EYE PAIN [None]
  - OCULAR HYPERTENSION [None]
